FAERS Safety Report 11778782 (Version 1)
Quarter: 2015Q4

REPORT INFORMATION
  Report Type: Report from Study
  Country: US (occurrence: US)
  Receive Date: 20151125
  Receipt Date: 20151125
  Transmission Date: 20160304
  Serious: Yes (Hospitalization)
  Sender: FDA-Public Use
  Company Number: US-ABBVIE-15K-163-1505039-00

PATIENT
  Age: 62 Year
  Sex: Male
  Weight: 127.12 kg

DRUGS (7)
  1. NEXIUM [Concomitant]
     Active Substance: ESOMEPRAZOLE MAGNESIUM
     Indication: GASTROOESOPHAGEAL REFLUX DISEASE
  2. VITAMIN D3 [Concomitant]
     Active Substance: CHOLECALCIFEROL
     Indication: VITAMIN SUPPLEMENTATION
  3. LORATADINE. [Concomitant]
     Active Substance: LORATADINE
     Indication: HYPERSENSITIVITY
  4. HUMIRA [Suspect]
     Active Substance: ADALIMUMAB
     Indication: CROHN^S DISEASE
     Route: 058
     Dates: start: 2013, end: 20151106
  5. INFLUENZA VACCIN [Suspect]
     Active Substance: INFLUENZA VIRUS VACCINE
     Indication: ANTIVIRAL PROPHYLAXIS
     Route: 065
     Dates: start: 20151106, end: 20151106
  6. FISH OIL [Concomitant]
     Active Substance: FISH OIL
     Indication: BLOOD CHOLESTEROL INCREASED
  7. TRAMADOL. [Concomitant]
     Active Substance: TRAMADOL
     Indication: PAIN

REACTIONS (15)
  - Cyst [Recovering/Resolving]
  - Nervousness [Not Recovered/Not Resolved]
  - Influenza [Recovering/Resolving]
  - Mobility decreased [Recovered/Resolved]
  - Gait disturbance [Recovered/Resolved]
  - Throat tightness [Recovered/Resolved]
  - Rash [Recovering/Resolving]
  - Hypertension [Recovering/Resolving]
  - Fatigue [Recovering/Resolving]
  - Abdominal pain upper [Not Recovered/Not Resolved]
  - Diabetes mellitus [Recovering/Resolving]
  - Hyperhidrosis [Recovered/Resolved]
  - Asthenia [Recovered/Resolved]
  - Hypophagia [Recovered/Resolved]
  - Diarrhoea [Not Recovered/Not Resolved]

NARRATIVE: CASE EVENT DATE: 2015
